FAERS Safety Report 19207659 (Version 1)
Quarter: 2021Q2

REPORT INFORMATION
  Report Type: Spontaneous
  Country: FR (occurrence: FR)
  Receive Date: 20210503
  Receipt Date: 20210503
  Transmission Date: 20210717
  Serious: Yes (Other)
  Sender: FDA-Public Use
  Company Number: FR-AUROBINDO-AUR-APL-2021-017575

PATIENT
  Age: 65 Year
  Sex: Male

DRUGS (1)
  1. CEFPODOXIME [Suspect]
     Active Substance: CEFPODOXIME
     Indication: BRONCHITIS
     Dosage: UNK
     Route: 048
     Dates: start: 20180322, end: 20180323

REACTIONS (5)
  - Fixed eruption [Recovered/Resolved]
  - Pruritus [Recovered/Resolved]
  - Cross sensitivity reaction [Recovered/Resolved]
  - Eye oedema [Recovered/Resolved]
  - Lip swelling [Recovered/Resolved]

NARRATIVE: CASE EVENT DATE: 201803
